FAERS Safety Report 20371735 (Version 2)
Quarter: 2022Q1

REPORT INFORMATION
  Report Type: Spontaneous
  Country: US (occurrence: US)
  Receive Date: 20220124
  Receipt Date: 20220127
  Transmission Date: 20220423
  Serious: Yes (Hospitalization, Other)
  Sender: FDA-Public Use
  Company Number: US-PFIZER INC-202200080770

PATIENT
  Age: 59 Year
  Sex: Female
  Weight: 63.5 kg

DRUGS (4)
  1. AMLODIPINE BESYLATE [Suspect]
     Active Substance: AMLODIPINE BESYLATE
     Indication: Hypertension
     Dosage: 2.5 MG, 1X/DAY (IN THE MORNING, AFTER FOOD)
     Route: 048
  2. TIZANIDINE HYDROCHLORIDE [Concomitant]
     Active Substance: TIZANIDINE HYDROCHLORIDE
     Indication: Muscle relaxant therapy
     Dosage: 2 MG
     Route: 048
  3. FLEXERIL [Concomitant]
     Active Substance: CYCLOBENZAPRINE HYDROCHLORIDE
     Indication: Muscle relaxant therapy
     Dosage: 2 MG
     Route: 048
  4. LOSARTAN POTASSIUM ACCORD [Concomitant]

REACTIONS (13)
  - Suspected counterfeit product [Unknown]
  - Tongue discolouration [Unknown]
  - Haemoptysis [Unknown]
  - Oophorectomy [Unknown]
  - Fungal pharyngitis [Unknown]
  - Foreign body in mouth [Unknown]
  - Choking sensation [Unknown]
  - Throat irritation [Unknown]
  - Oral discomfort [Unknown]
  - Tongue discomfort [Unknown]
  - Oesophageal pain [Unknown]
  - Full blood count abnormal [Unknown]
  - Urine analysis abnormal [Unknown]
